FAERS Safety Report 14321221 (Version 7)
Quarter: 2022Q2

REPORT INFORMATION
  Report Type: Spontaneous
  Country: GB (occurrence: GB)
  Receive Date: 20171223
  Receipt Date: 20220603
  Transmission Date: 20220720
  Serious: Yes (Life-Threatening, Hospitalization, Other)
  Sender: FDA-Public Use
  Company Number: GB-TORRENT-00015816

PATIENT
  Age: 48 Year
  Sex: Female

DRUGS (7)
  1. LAMOTRIGINE [Suspect]
     Active Substance: LAMOTRIGINE
     Indication: Myoclonic epilepsy
     Dosage: 25 MG, QD/INCREASED 50 MG/DAY AFTER 2 WEEKS
     Route: 065
  2. LAMOTRIGINE [Suspect]
     Active Substance: LAMOTRIGINE
     Indication: Juvenile myoclonic epilepsy
     Dosage: 50 MG, ONCE DAILY
     Route: 065
  3. LAMOTRIGINE [Suspect]
     Active Substance: LAMOTRIGINE
     Dosage: 50 MILLIGRAM
     Route: 065
  4. CARBAMAZEPINE [Suspect]
     Active Substance: CARBAMAZEPINE
     Indication: Juvenile myoclonic epilepsy
     Dosage: 200 MG, QD (MORNING)
     Route: 065
  5. CARBAMAZEPINE [Suspect]
     Active Substance: CARBAMAZEPINE
     Indication: Myoclonic epilepsy
     Dosage: 400 MG, QD (NIGHT)
     Route: 065
  6. CARBAMAZEPINE [Concomitant]
     Active Substance: CARBAMAZEPINE
     Dosage: 400 MILLIGRAM, HS
     Route: 065
  7. CARBAMAZEPINE [Concomitant]
     Active Substance: CARBAMAZEPINE
     Dosage: 200 MILLIGRAM
     Route: 065

REACTIONS (4)
  - Meningitis aseptic [Recovered/Resolved]
  - Drug reaction with eosinophilia and systemic symptoms [Recovered/Resolved]
  - Therapeutic response decreased [Unknown]
  - Drug hypersensitivity [Recovered/Resolved]
